FAERS Safety Report 10177552 (Version 1)
Quarter: 2014Q2

REPORT INFORMATION
  Report Type: Spontaneous
  Country: FR (occurrence: FR)
  Receive Date: 20140516
  Receipt Date: 20140516
  Transmission Date: 20141212
  Serious: Yes (Hospitalization)
  Sender: FDA-Public Use
  Company Number: FR-BRISTOL-MYERS SQUIBB COMPANY-20732574

PATIENT
  Age: 83 Year
  Sex: Male

DRUGS (7)
  1. SPRYCEL (CML) TABS 100 MG [Suspect]
     Indication: CHRONIC MYELOID LEUKAEMIA
     Dosage: 07OCT2013-21OCT2013,JAN2014-MAR2014
     Route: 048
     Dates: start: 20131007, end: 201403
  2. TRIATEC [Concomitant]
  3. XATRAL [Concomitant]
  4. INEXIUM [Concomitant]
  5. GLIMEPIRIDE [Concomitant]
     Dates: end: 201401
  6. DAFALGAN [Concomitant]
  7. GLIVEC [Concomitant]
     Dates: end: 20131007

REACTIONS (5)
  - Necrosis [Recovered/Resolved with Sequelae]
  - Peripheral arterial occlusive disease [Recovered/Resolved with Sequelae]
  - Vomiting [Recovered/Resolved with Sequelae]
  - Visual acuity reduced [Unknown]
  - Diabetic retinopathy [Unknown]
